FAERS Safety Report 8987856 (Version 2)
Quarter: 2013Q1

REPORT INFORMATION
  Report Type: Spontaneous
  Country: US (occurrence: US)
  Receive Date: 20121227
  Receipt Date: 20130125
  Transmission Date: 20140127
  Serious: Yes (Death, Life-Threatening, Hospitalization, Other)
  Sender: FDA-Public Use
  Company Number: US-GLAXOSMITHKLINE-A1006414A

PATIENT
  Age: 79 Year
  Sex: Female
  Weight: 95.5 kg

DRUGS (1)
  1. VOTRIENT [Suspect]
     Indication: PRODUCT USED FOR UNKNOWN INDICATION
     Dosage: 200MG UNKNOWN
     Route: 065
     Dates: start: 20120509

REACTIONS (3)
  - Renal cell carcinoma [Fatal]
  - Hypovolaemic shock [Fatal]
  - Renal failure acute [Fatal]
